FAERS Safety Report 5427733-2 (Version None)
Quarter: 2007Q3

REPORT INFORMATION
  Report Type: 
  Country: None (occurrence: None)
  Receive Date: 20070828
  Receipt Date: 20070816
  Transmission Date: 20080115
  Serious: Yes (Death)
  Sender: FDA-Public Use
  Company Number: DE-PURDUE-DEU_2007_0003576

PATIENT
  Age: 66 Year
  Sex: Male

DRUGS (2)
  1. MORPHINE SULFATE [Suspect]
     Indication: DRUG USE FOR UNKNOWN INDICATION
     Dosage: 5 MG, SEE TEXT
     Route: 042
  2. MORPHINE SULFATE [Suspect]
     Dosage: 5 MG, SEE TEXT
     Route: 058

REACTIONS (1)
  - CARDIAC FAILURE [None]
